FAERS Safety Report 6217852-5 (Version None)
Quarter: 2009Q2

REPORT INFORMATION
  Report Type: 
  Country: None (occurrence: None)
  Receive Date: 20090608
  Receipt Date: 20090527
  Transmission Date: 20091009
  Serious: Yes (Hospitalization)
  Sender: FDA-Public Use
  Company Number: TR-ROCHE-603322

PATIENT
  Sex: Male
  Weight: 54 kg

DRUGS (1)
  1. METHOXY POLYETHYLENE GLYCOL-EPOETIN BETA [Suspect]
     Dosage: DOSE REPORTED AS:150 MCG/ 0.3ML. FREQUENCY REPORTED AS:DAY/MONTHLY. DOSAGE FORM REPORTED AS:PFS.
     Route: 042
     Dates: start: 20080910, end: 20081226

REACTIONS (1)
  - ISCHAEMIC STROKE [None]
